FAERS Safety Report 6128305-7 (Version None)
Quarter: 2009Q1

REPORT INFORMATION
  Report Type: 
  Country: None (occurrence: None)
  Receive Date: 20090323
  Receipt Date: 20090313
  Transmission Date: 20090719
  Serious: Yes (Hospitalization)
  Sender: FDA-Public Use
  Company Number: A0765790A

PATIENT
  Age: 75 Year
  Sex: Female
  Weight: 86.4 kg

DRUGS (7)
  1. AVANDIA [Suspect]
     Indication: DIABETES MELLITUS
     Dosage: 4MG TWICE PER DAY
     Route: 048
     Dates: start: 19990920, end: 20060701
  2. PREMARIN [Concomitant]
  3. MEVACOR [Concomitant]
  4. CELEXA [Concomitant]
  5. COZAAR [Concomitant]
  6. POTASSIUM CHLORIDE [Concomitant]
  7. SPIRONOLACTONE [Concomitant]

REACTIONS (3)
  - ATRIAL FIBRILLATION [None]
  - MITRAL VALVE DISEASE [None]
  - MYOCARDIAL INFARCTION [None]
